FAERS Safety Report 9638323 (Version 1)
Quarter: 2013Q4

REPORT INFORMATION
  Report Type: Spontaneous
  Country: US (occurrence: US)
  Receive Date: 20131022
  Receipt Date: 20131022
  Transmission Date: 20140711
  Serious: Yes (Other)
  Sender: FDA-Public Use
  Company Number: US-GLAXOSMITHKLINE-A1046173A

PATIENT
  Age: 57 Year
  Sex: Female

DRUGS (2)
  1. ADVAIR [Suspect]
     Indication: RESPIRATORY DISORDER
     Route: 055
  2. VENTOLIN [Suspect]
     Indication: RESPIRATORY DISORDER
     Route: 055

REACTIONS (2)
  - Hospitalisation [Unknown]
  - Drug administration error [Unknown]
